FAERS Safety Report 11470330 (Version 2)
Quarter: 2015Q3

REPORT INFORMATION
  Report Type: Spontaneous
  Country: US (occurrence: US)
  Receive Date: 20150903
  Receipt Date: 20150903
  Transmission Date: 20151125
  Serious: No
  Sender: FDA-Public Use
  Company Number: US-ELI_LILLY_AND_COMPANY-US201111003808

PATIENT
  Sex: Female

DRUGS (3)
  1. CYMBALTA [Suspect]
     Active Substance: DULOXETINE HYDROCHLORIDE
     Indication: FIBROMYALGIA
     Dosage: 30 MG, EACH EVENING
  2. LYRICA [Concomitant]
     Active Substance: PREGABALIN
  3. TRAMADOL. [Concomitant]
     Active Substance: TRAMADOL

REACTIONS (5)
  - Insomnia [Unknown]
  - Feeling abnormal [Not Recovered/Not Resolved]
  - Nervousness [Unknown]
  - Restlessness [Unknown]
  - Joint stiffness [Unknown]
